FAERS Safety Report 7248089-9 (Version None)
Quarter: 2011Q1

REPORT INFORMATION
  Report Type: 
  Country: None (occurrence: None)
  Receive Date: 20110127
  Receipt Date: 20110119
  Transmission Date: 20110831
  Serious: Yes (Hospitalization, Other)
  Sender: FDA-Public Use
  Company Number: US-JNJFOC-20101006617

PATIENT
  Sex: Female
  Weight: 55.34 kg

DRUGS (36)
  1. THYROID TAB [Concomitant]
     Route: 048
  2. DURAGESIC-50 [Suspect]
     Route: 062
  3. LEVOTHYROXINE SODIUM [Suspect]
     Indication: GOITRE
     Route: 065
  4. UNKNOWN MEDICATION [Suspect]
     Indication: ILL-DEFINED DISORDER
     Route: 065
  5. ALBUTEROL SULFATE AND IPRATROPIUM BROMIDE [Concomitant]
     Indication: DYSPNOEA
     Dosage: NEBULIZER EVERY 4 HOURS AS NEEDED
     Route: 065
  6. AMLODIPINE BESYLATE [Concomitant]
     Route: 048
  7. NEURONTIN [Concomitant]
     Route: 048
  8. LEVOTHYROXINE SODIUM [Concomitant]
     Route: 048
  9. DURAGESIC-50 [Suspect]
     Dosage: NDC# 50458-094-05
     Route: 062
  10. NORVASC [Concomitant]
     Route: 065
  11. ATROVENT [Concomitant]
     Dosage: 2 SPRAYS IN EACH NOSTRIL
     Route: 045
  12. DURAGESIC-50 [Suspect]
     Route: 062
  13. DURAGESIC-50 [Suspect]
     Route: 062
  14. DYE (CONTRAST MEDIA) [Suspect]
     Indication: ILL-DEFINED DISORDER
     Route: 065
  15. OMEPRAZOLE [Concomitant]
     Route: 065
  16. ESTRATEST H.S. [Concomitant]
     Dosage: 0.625-1.25
     Route: 048
  17. DURAGESIC-50 [Suspect]
     Route: 062
  18. DURAGESIC-50 [Suspect]
     Route: 062
  19. DURAGESIC-50 [Suspect]
     Route: 062
  20. HYDROCODONE BITARTRATE AND ACETAMINOPHEN [Concomitant]
     Indication: PAIN
     Dosage: 325/10 MG 1 TABLET EVERY 4 HOURS AS NEEDED
     Route: 065
  21. POTASSIUM CHLORIDE [Concomitant]
     Route: 065
  22. WELLBUTRIN [Concomitant]
     Route: 048
  23. CYMBALTA [Concomitant]
     Route: 048
  24. ATIVAN [Concomitant]
     Route: 048
  25. ATIVAN [Concomitant]
     Route: 048
  26. LEVOTHYROXINE SODIUM [Concomitant]
     Route: 048
  27. DURAGESIC-50 [Suspect]
     Indication: INTERVERTEBRAL DISC DEGENERATION
     Route: 062
  28. DURAGESIC-50 [Suspect]
     Route: 062
  29. NORCO [Concomitant]
     Dosage: 1-2 4 TIMES
     Route: 048
  30. LEVOXYL [Concomitant]
     Route: 048
  31. DURAGESIC-50 [Suspect]
     Route: 062
  32. DURAGESIC-50 [Suspect]
     Route: 062
  33. NORCO [Concomitant]
     Dosage: 10MG-325MG
     Route: 048
  34. DOCUSATE [Concomitant]
     Route: 065
  35. FLUTICASONE PROPIONATE [Concomitant]
     Dosage: 2 SPRAYS EACH NOSTRILS
     Route: 045
  36. KEPPRA [Concomitant]
     Route: 065

REACTIONS (15)
  - CONTRAST MEDIA REACTION [None]
  - PULMONARY EMBOLISM [None]
  - RESPIRATORY FAILURE [None]
  - DEEP VEIN THROMBOSIS [None]
  - HAEMOGLOBIN DECREASED [None]
  - METABOLIC ENCEPHALOPATHY [None]
  - NEUROGENIC BLADDER [None]
  - HYPERTENSION [None]
  - ADVERSE DRUG REACTION [None]
  - DEPRESSION [None]
  - ANXIETY [None]
  - DRUG INEFFECTIVE [None]
  - FEELING ABNORMAL [None]
  - GOITRE [None]
  - INSOMNIA [None]
